FAERS Safety Report 5324837-X (Version None)
Quarter: 2007Q2

REPORT INFORMATION
  Report Type: 
  Country: None (occurrence: None)
  Receive Date: 20070515
  Receipt Date: 20070504
  Transmission Date: 20071010
  Serious: Yes (Death, Hospitalization)
  Sender: FDA-Public Use
  Company Number: HU-ELI_LILLY_AND_COMPANY-HU200702001118

PATIENT
  Age: 59 Year
  Sex: Female
  Weight: 42 kg

DRUGS (29)
  1. GEMZAR [Suspect]
     Indication: NON-SMALL CELL LUNG CANCER
     Dosage: 2000 MG, UNK
     Route: 042
     Dates: start: 20061215
  2. GEMZAR [Suspect]
  3. CISPLATIN [Concomitant]
     Indication: NON-SMALL CELL LUNG CANCER
     Dosage: 60 MG, UNK
     Route: 042
     Dates: start: 20061215
  4. CISPLATIN [Concomitant]
  5. METHYLPREDNISOLONE 16MG TAB [Concomitant]
     Dosage: 16 MG, UNK
  6. RANITIDINE [Concomitant]
     Dosage: 150 MG, 2/D
  7. METOPROLOL SUCCINATE [Concomitant]
     Dosage: 100 MG, UNK
  8. SOLU-MEDROL [Concomitant]
     Dosage: 32 MG, UNK
     Dates: start: 20061220
  9. SOLU-MEDROL [Concomitant]
     Dosage: 40 MG, DAILY (1/D)
     Dates: start: 20070114
  10. SALSOL A [Concomitant]
     Dosage: INFUSION
     Dates: start: 20070114
  11. SALSOL A [Concomitant]
     Dosage: 500 ML, INFUSION
     Dates: start: 20070115
  12. RINDEX [Concomitant]
     Dates: start: 20070114
  13. RINDEX [Concomitant]
     Dosage: 500 ML, IN THE MORNING AND AFTERNOON
     Dates: start: 20070207
  14. RINDEX [Concomitant]
     Dosage: 500ML, 2X500ML AFTERNOON + 500ML AT NIGHT
     Dates: start: 20070208
  15. RINDEX [Concomitant]
     Dosage: 500 ML, 2/D
     Dates: start: 20070209
  16. RINDEX [Concomitant]
     Dosage: 500 ML INFUSION, 3/D
     Dates: start: 20070210
  17. CERUCAL [Concomitant]
     Dosage: 1 AMPOULLE
     Dates: start: 20070115
  18. SODIUM [Concomitant]
     Dosage: 1 AMPOULLE
     Dates: start: 20070115
  19. DONALGIN [Concomitant]
     Dosage: 1 UNK, UNK
     Dates: start: 20070115
  20. SODIUM CHLORIDE [Concomitant]
     Dosage: 1 AMPOULLE
     Dates: start: 20070116
  21. DIGOXIN [Concomitant]
     Dosage: 0.5 AMPOULLE, OTHER
     Dates: start: 20070207
  22. DIGOXIN [Concomitant]
     Dosage: 1 AMPOULLE
     Dates: start: 20070209
  23. DIGOXIN [Concomitant]
     Dosage: 0.5 AMPOULLE
     Dates: start: 20070210
  24. SUPRASTIN [Concomitant]
     Dosage: 1 AMPOULLE AT NIGHT
     Route: 042
     Dates: start: 20070207
  25. FUROSEMIDE [Concomitant]
     Dosage: 1 AMPOULLE IN AFTERNOON
     Dates: start: 20070208, end: 20070208
  26. FUROSEMIDE [Concomitant]
     Dosage: 2 AMPOULLES
     Dates: start: 20070210
  27. THERAPEUTIC RADIOPHARMACEUTICALS [Concomitant]
     Dosage: 3 GY/DIE (FIVE TREATMENTS)
     Dates: start: 20061215, end: 20061221
  28. BETALOC [Concomitant]
     Dosage: UNK, UNK
  29. NUTRIDRINK [Concomitant]

REACTIONS (13)
  - ANAEMIA [None]
  - ASTHENIA [None]
  - CONSTIPATION [None]
  - DECUBITUS ULCER [None]
  - DISEASE PROGRESSION [None]
  - DYSPHAGIA [None]
  - DYSPNOEA [None]
  - GENERAL PHYSICAL HEALTH DETERIORATION [None]
  - INSOMNIA [None]
  - MICTURITION DISORDER [None]
  - NAUSEA [None]
  - PERICARDIAL EFFUSION [None]
  - URTICARIA [None]
